FAERS Safety Report 6408939-2 (Version None)
Quarter: 2009Q4

REPORT INFORMATION
  Report Type: 
  Country: None (occurrence: None)
  Receive Date: 20091021
  Receipt Date: 20090318
  Transmission Date: 20100525
  Serious: Yes (Hospitalization)
  Sender: FDA-Public Use
  Company Number: US-ASTRAZENECA-2009AC00882

PATIENT
  Age: 63 Year
  Sex: Male

DRUGS (4)
  1. MEROPENEM [Suspect]
     Route: 065
  2. CEFTRIAXONE [Suspect]
     Route: 065
  3. DOXYCYCLINE [Suspect]
     Route: 065
  4. VANCOMYCIN [Suspect]
     Route: 042

REACTIONS (1)
  - DIARRHOEA [None]
